FAERS Safety Report 13022153 (Version 3)
Quarter: 2018Q4

REPORT INFORMATION
  Report Type: Spontaneous
  Country: DE (occurrence: DE)
  Receive Date: 20161213
  Receipt Date: 20181224
  Transmission Date: 20190204
  Serious: Yes (Hospitalization, Other)
  Sender: FDA-Public Use
  Company Number: PHHY2016DE165942

PATIENT
  Sex: Male
  Weight: 19.5 kg

DRUGS (2)
  1. ILARIS [Suspect]
     Active Substance: CANAKINUMAB
     Indication: JUVENILE IDIOPATHIC ARTHRITIS
     Dosage: 75 MG, ONCE/SINGLE
     Route: 058
     Dates: start: 20160217, end: 20160217
  2. IBUPROFEN. [Concomitant]
     Active Substance: IBUPROFEN
     Indication: JUVENILE IDIOPATHIC ARTHRITIS
     Dosage: 600 MG, QD
     Route: 048
     Dates: start: 20160215, end: 20160219

REACTIONS (6)
  - Still^s disease [Recovered/Resolved]
  - Pneumonia [Recovered/Resolved]
  - C-reactive protein increased [Unknown]
  - Neutrophil count increased [Unknown]
  - Red blood cell sedimentation rate increased [Unknown]
  - White blood cell count increased [Unknown]

NARRATIVE: CASE EVENT DATE: 20161121
